FAERS Safety Report 7478700-9 (Version None)
Quarter: 2011Q2

REPORT INFORMATION
  Report Type: 
  Country: None (occurrence: None)
  Receive Date: 20110513
  Receipt Date: 20110502
  Transmission Date: 20111010
  Serious: Yes (Hospitalization)
  Sender: FDA-Public Use
  Company Number: IN-JNJFOC-20110412549

PATIENT
  Age: 23 Year
  Sex: Female
  Weight: 49 kg

DRUGS (5)
  1. ETORICOXIB [Concomitant]
     Indication: RHEUMATOID ARTHRITIS
     Route: 048
  2. ALL OTHER THERAPEUTIC PRODUCTS [Concomitant]
  3. RABEPRAZOLE SODIUM [Concomitant]
     Indication: RHEUMATOID ARTHRITIS
     Route: 048
  4. ERBITUX [Suspect]
     Indication: RHEUMATOID ARTHRITIS
     Route: 058
  5. ERBITUX [Suspect]
     Route: 058

REACTIONS (1)
  - GASTROENTERITIS [None]
